FAERS Safety Report 5576406-4 (Version None)
Quarter: 2007Q4

REPORT INFORMATION
  Report Type: 
  Country: None (occurrence: None)
  Receive Date: 20071130
  Receipt Date: 20070919
  Transmission Date: 20080405
  Serious: No
  Sender: FDA-Public Use
  Company Number: US200709004199

PATIENT
  Age: 59 Year
  Sex: Female

DRUGS (5)
  1. BYETTA [Suspect]
     Indication: TYPE 2 DIABETES MELLITUS
     Dosage: 5UG, 10UG, 2/D SUBCUTANEOUS
     Route: 058
     Dates: start: 20070806, end: 20070829
  2. BYETTA [Suspect]
     Indication: TYPE 2 DIABETES MELLITUS
     Dosage: 5UG, 10UG, 2/D SUBCUTANEOUS
     Route: 058
     Dates: start: 20070830
  3. METFORMIN HCL [Concomitant]
  4. ACTOS/USA/PIOGLITAZONE HYDROCHLORIDE [Concomitant]
  5. GLIPIZIDE [Concomitant]

REACTIONS (2)
  - DRUG EFFECT DECREASED [None]
  - GASTROINTESTINAL DISORDER [None]
